FAERS Safety Report 10222968 (Version 1)
Quarter: 2014Q2

REPORT INFORMATION
  Report Type: Spontaneous
  Country: DE (occurrence: DE)
  Receive Date: 20140607
  Receipt Date: 20140607
  Transmission Date: 20141212
  Serious: Yes (Life-Threatening)
  Sender: FDA-Public Use
  Company Number: GXKR2014DE002128

PATIENT
  Age: 73 Year
  Sex: Male

DRUGS (3)
  1. LEVOFLOXACIN HEXAL [Suspect]
     Indication: BRONCHITIS
     Dosage: DAILY DOSE: 500 MG MILLIGRAM(S) EVERY DAY
     Route: 048
     Dates: start: 20130213, end: 20130217
  2. VENTOLAIR [Concomitant]
     Dosage: DAILY DOSE: 2 DF DOSAGE FORM EVERY DAY
     Route: 055
  3. XARELTO [Concomitant]
     Indication: ATRIAL FIBRILLATION
     Route: 048
     Dates: start: 201205

REACTIONS (5)
  - Gastric haemorrhage [Unknown]
  - Epistaxis [Unknown]
  - Melaena [Unknown]
  - Mouth haemorrhage [Unknown]
  - Intestinal haemorrhage [Unknown]
